FAERS Safety Report 16596719 (Version 1)
Quarter: 2019Q3

REPORT INFORMATION
  Report Type: Spontaneous
  Country: US (occurrence: US)
  Receive Date: 20190719
  Receipt Date: 20190719
  Transmission Date: 20191004
  Serious: Yes (Life-Threatening, Other)
  Sender: FDA-Public Use
  Company Number: US-ACCORD-139083

PATIENT
  Age: 22 Year
  Sex: Female
  Weight: 45.13 kg

DRUGS (7)
  1. FOLIC ACID. [Concomitant]
     Active Substance: FOLIC ACID
     Route: 048
  2. HYDROCORTISONE. [Concomitant]
     Active Substance: HYDROCORTISONE
     Indication: DERMATOMYOSITIS
     Dosage: TO APPLY TO ALL AFFECTED AREAS OF THE FACE DAILY
     Route: 061
  3. FLUOCINONIDE. [Concomitant]
     Active Substance: FLUOCINONIDE
     Indication: DERMATOMYOSITIS
     Dosage: TO APPLY TO TO SCALP DAILY
     Route: 061
  4. PREDNISONE. [Concomitant]
     Active Substance: PREDNISONE
     Route: 048
  5. METHOTREXATE. [Suspect]
     Active Substance: METHOTREXATE
     Indication: PRODUCT USED FOR UNKNOWN INDICATION
     Route: 048
  6. PLAQUENIL [Suspect]
     Active Substance: HYDROXYCHLOROQUINE SULFATE
     Indication: PRODUCT USED FOR UNKNOWN INDICATION
     Route: 048
  7. TRIAMCINOLONE [Concomitant]
     Active Substance: TRIAMCINOLONE
     Indication: DERMATOMYOSITIS
     Dosage: TO APPLY TO THE AFFECTED SKIN OR THE TRUNK DAILY
     Route: 061

REACTIONS (2)
  - Toxicity to various agents [Unknown]
  - Pancytopenia [Unknown]
